FAERS Safety Report 9579565 (Version 1)
Quarter: 2013Q4

REPORT INFORMATION
  Report Type: Spontaneous
  Country: US (occurrence: US)
  Receive Date: 20131001
  Receipt Date: 20131001
  Transmission Date: 20140711
  Serious: No
  Sender: FDA-Public Use
  Company Number: US-AMGEN-USASP2013039677

PATIENT
  Age: 7 Year
  Sex: Female
  Weight: 22 kg

DRUGS (20)
  1. PROCRIT [Suspect]
     Indication: PRODUCT USED FOR UNKNOWN INDICATION
     Dosage: 2000 UNIT, ONCE
     Route: 042
  2. PREDNISONE [Concomitant]
     Dosage: UNK
  3. POTASSIUM CITRATE [Concomitant]
     Dosage: UNK
  4. TOPRAZOLE [Concomitant]
     Dosage: UNK
  5. OXYBUTYNIN [Concomitant]
     Dosage: UNK
  6. OMEPRAZOLE [Concomitant]
     Dosage: UNK
  7. ONDANSETRON [Concomitant]
     Dosage: UNK
  8. PENICILLIN                         /00000901/ [Concomitant]
     Dosage: UNK
  9. MOMETASONE FUROATE [Concomitant]
     Dosage: UNK
  10. METRONIDAZOLE [Concomitant]
     Dosage: UNK
  11. LEVOCETIRIZINE [Concomitant]
     Dosage: UNK
  12. HYOSCYAMINE [Concomitant]
     Dosage: UNK
  13. GUANFACINE [Concomitant]
     Dosage: UNK
  14. FLUTICASONE [Concomitant]
     Dosage: UNK
  15. ERGOCALCIFEROL [Concomitant]
     Dosage: UNK
  16. DICYCLOMINE                        /00068601/ [Concomitant]
     Dosage: UNK
  17. DICLOFENAC [Concomitant]
     Dosage: UNK
  18. CYPROHEPTADINE                     /00042702/ [Concomitant]
     Dosage: UNK
  19. ALBUTEROL                          /00139501/ [Concomitant]
     Dosage: UNK
  20. MULTIVITAMIN                       /00097801/ [Concomitant]
     Dosage: UNK

REACTIONS (1)
  - Expired drug administered [Not Recovered/Not Resolved]
